FAERS Safety Report 21227934 (Version 1)
Quarter: 2022Q3

REPORT INFORMATION
  Report Type: Spontaneous
  Country: DE (occurrence: DE)
  Receive Date: 20220818
  Receipt Date: 20220818
  Transmission Date: 20221027
  Serious: Yes (Congenital Anomaly)
  Sender: FDA-Public Use
  Company Number: None

PATIENT
  Age: 6 Week
  Sex: Male
  Weight: 2 kg

DRUGS (2)
  1. CETIRIZINE [Suspect]
     Active Substance: CETIRIZINE HYDROCHLORIDE
     Indication: Hypersensitivity
     Route: 064
     Dates: start: 20210419, end: 20211229
  2. LEVOTHYROXINE SODIUM [Concomitant]
     Active Substance: LEVOTHYROXINE SODIUM
     Indication: Hypothyroidism
     Dosage: 75 [G/D ]
     Route: 064
     Dates: start: 20210519, end: 20211209

REACTIONS (3)
  - Foetal exposure during pregnancy [Unknown]
  - Ventricular septal defect [Unknown]
  - Atrial septal defect [Unknown]
